FAERS Safety Report 9196197 (Version 1)
Quarter: 2013Q1

REPORT INFORMATION
  Report Type: Spontaneous
  Country: US (occurrence: None)
  Receive Date: 20120709
  Receipt Date: 20120709
  Transmission Date: 20140127
  Serious: No
  Sender: FDA-Public Use
  Company Number: 2012HGS-003641

PATIENT
  Age: 55 Year
  Sex: Female

DRUGS (12)
  1. BENLYSTA [Suspect]
     Dosage: 1 IN 28 D, INTRAVENOUS DRIP
     Route: 041
     Dates: start: 20120319
  2. PLAQUENIL(HYDROXYCHLOROQUINE PHOSPHATE) (HYDROXYCHLOROQUINE PHOSPHATE) [Concomitant]
  3. FELDENE(PIROXICAM)(PIROXICAM) [Concomitant]
  4. MULTIVITAMIN(VIGRAN)(ERGOCALCIFEROL, ASCORBIC ACID, PYRIDOXINE HYDROCHLORIDE, THIAMINE HYDROCHLORIDE, RETINOL, RIBOFLAVIN, NICOTINAMIDE, CALCIUM PANTOTHENATE) [Concomitant]
  5. ASPIRIN(ACETYLSALICYLIC ACID)(ACETYLSALICYLIC ACID) [Concomitant]
  6. PROTONIX(PANTOPRAZOLE SODIUM SESQUIHYDRATE)(PANTOPRAZOLE SODIUM SESQUIHYDRATE) [Concomitant]
  7. PRAVASTATIN(PRAVASTATIN)(PRAVASTATIN) [Concomitant]
  8. LORTAB(VICODIN)(PARACETAMOL, HYDROCODONE BITARTRATE) [Concomitant]
  9. VITAMIN D3(COLECALCIFEROL)(COLECALCIFEROL) [Concomitant]
  10. ZOLPIDEM(ZOLPIDEM)(ZOLPIDEM) [Concomitant]
  11. RECLAST(ZOLEDRONIC ACID)(ZOLEDRONIC ACID) [Concomitant]
  12. METOPROLOL(METOPROLOL)(METOPROLOL) [Concomitant]

REACTIONS (3)
  - Panic attack [None]
  - Rhinorrhoea [None]
  - Weight increased [None]
